FAERS Safety Report 6508774-0 (Version None)
Quarter: 2009Q4

REPORT INFORMATION
  Report Type: 
  Country: None (occurrence: None)
  Receive Date: 20091221
  Receipt Date: 20091210
  Transmission Date: 20100525
  Serious: Yes (Hospitalization, Disabling)
  Sender: FDA-Public Use
  Company Number: US-ELI_LILLY_AND_COMPANY-US200912002775

PATIENT
  Sex: Female

DRUGS (6)
  1. CYMBALTA [Suspect]
     Indication: DEPRESSION
     Dosage: 90 MG, DAILY (1/D)
     Dates: start: 20030101, end: 20061001
  2. CYMBALTA [Suspect]
     Dosage: 1 D/F, DAILY (1/D)
     Dates: start: 20061001, end: 20090901
  3. EFFEXOR [Concomitant]
  4. METFORMIN HCL [Concomitant]
  5. ASPIRIN [Concomitant]
  6. ANTIHYPERTENSIVES [Concomitant]

REACTIONS (6)
  - ANXIETY [None]
  - CRYING [None]
  - HOT FLUSH [None]
  - PNEUMOTHORAX TRAUMATIC [None]
  - RIB FRACTURE [None]
  - ROAD TRAFFIC ACCIDENT [None]
